FAERS Safety Report 13095247 (Version 1)
Quarter: 2017Q1

REPORT INFORMATION
  Report Type: Spontaneous
  Country: US (occurrence: US)
  Receive Date: 20170107
  Receipt Date: 20170107
  Transmission Date: 20170428
  Serious: No
  Sender: FDA-Public Use
  Company Number: US-DRREDDYS-DRL/USA/16/0078432

PATIENT
  Age: 47 Year
  Sex: Female
  Weight: 56.6 kg

DRUGS (2)
  1. HABITROL [Suspect]
     Active Substance: NICOTINE
     Indication: SMOKING CESSATION THERAPY
     Route: 062
     Dates: start: 20160325
  2. ATENOLOL. [Concomitant]
     Active Substance: ATENOLOL
     Indication: VENTRICULAR EXTRASYSTOLES
     Route: 065

REACTIONS (6)
  - Pruritus [Not Recovered/Not Resolved]
  - Application site vesicles [Recovering/Resolving]
  - Skin discolouration [Not Recovered/Not Resolved]
  - Drug hypersensitivity [Unknown]
  - Feeling hot [Not Recovered/Not Resolved]
  - Product quality issue [Unknown]

NARRATIVE: CASE EVENT DATE: 20160329
